FAERS Safety Report 6414670-X (Version None)
Quarter: 2009Q4

REPORT INFORMATION
  Report Type: 
  Country: None (occurrence: None)
  Receive Date: 20091021
  Receipt Date: 20091009
  Transmission Date: 20100525
  Serious: Yes (Hospitalization, Other)
  Sender: FDA-Public Use
  Company Number: JPI-P-008811

PATIENT
  Age: 32 Year
  Sex: Male
  Weight: 92.9874 kg

DRUGS (5)
  1. XYREM [Suspect]
     Indication: NARCOLEPSY
     Dosage: 4.5 GM (2.25 GM, 2 IN 1 D), ORAL; 9 GM (4.5 GM, 2 IN 1 D), ORAL
     Route: 048
     Dates: start: 20070101
  2. IOHEXOL [Suspect]
     Indication: SCAN WITH CONTRAST
     Dates: start: 20091007, end: 20091007
  3. LITHIUM CARBONATE [Concomitant]
  4. LAMOTRIGINE [Concomitant]
  5. QUETIAPINE FUMARATE [Concomitant]

REACTIONS (24)
  - ABNORMAL DREAMS [None]
  - BURNING SENSATION [None]
  - CONVULSION [None]
  - DISORIENTATION [None]
  - DYSKINESIA [None]
  - DYSPNOEA [None]
  - FALL [None]
  - HEADACHE [None]
  - HEART RATE INCREASED [None]
  - HYPERHIDROSIS [None]
  - HYPOAESTHESIA [None]
  - INTERVERTEBRAL DISC PROTRUSION [None]
  - MEMORY IMPAIRMENT [None]
  - MUSCULOSKELETAL STIFFNESS [None]
  - MYALGIA [None]
  - OLFACTORY NERVE DISORDER [None]
  - PANIC ATTACK [None]
  - PARAESTHESIA [None]
  - PERONEAL NERVE PALSY [None]
  - SENSORY DISTURBANCE [None]
  - SLEEP DISORDER [None]
  - SPEECH DISORDER [None]
  - TESTICULAR DISORDER [None]
  - TREMOR [None]
